FAERS Safety Report 25249488 (Version 1)
Quarter: 2025Q2

REPORT INFORMATION
  Report Type: Spontaneous
  Country: US (occurrence: US)
  Receive Date: 20250429
  Receipt Date: 20250429
  Transmission Date: 20250717
  Serious: No
  Sender: CHATTEM
  Company Number: US-OPELLA-2025OHG012501

PATIENT
  Sex: Female

DRUGS (1)
  1. XYZAL [Suspect]
     Active Substance: LEVOCETIRIZINE DIHYDROCHLORIDE
     Indication: Eye pruritus

REACTIONS (2)
  - Nasal dryness [Unknown]
  - Drug ineffective [Unknown]
